FAERS Safety Report 8273782-9 (Version None)
Quarter: 2012Q2

REPORT INFORMATION
  Report Type: 
  Country: None (occurrence: None)
  Receive Date: 20120411
  Receipt Date: 20120402
  Transmission Date: 20120825
  Serious: Yes (Life-Threatening, Hospitalization, Other)
  Sender: FDA-Public Use
  Company Number: US-CELGENEUS-163-21880-11123487

PATIENT
  Sex: Male
  Weight: 83.99 kg

DRUGS (21)
  1. OXYCODONE HCL [Concomitant]
     Dosage: 2-3 TABLETS
     Route: 065
  2. FLUID [Concomitant]
     Route: 041
  3. ACYCLOVIR [Concomitant]
     Indication: PROPHYLAXIS
     Dosage: 200 MILLIGRAM
     Route: 065
  4. ASPIRIN [Concomitant]
     Dosage: 325 MILLIGRAM
  5. URSODIOL [Concomitant]
     Dosage: 300 MILLIGRAM
     Route: 048
  6. NOVOLOG [Concomitant]
     Dosage: SLIDING SCALE
     Route: 065
  7. VELCADE [Concomitant]
     Dosage: 1.3 MILLIGRAM/SQ. METER
     Route: 041
     Dates: start: 20111219
  8. ATIVAN [Concomitant]
     Indication: VOMITING
     Route: 065
  9. URSO FORTE [Concomitant]
     Dosage: 250 MILLIGRAM
     Route: 065
  10. TURMERIC [Concomitant]
     Route: 065
  11. ANTIBIOTICS [Concomitant]
     Route: 065
  12. VELCADE [Concomitant]
     Dosage: 2.3 MILLIGRAM
     Route: 041
  13. DEXAMETHASONE [Concomitant]
     Indication: MULTIPLE MYELOMA
     Dosage: 40 MILLIGRAM
     Route: 041
     Dates: start: 20111214, end: 20111217
  14. REVLIMID [Suspect]
     Indication: MULTIPLE MYELOMA
     Dosage: 5 MILLIGRAM
     Route: 048
     Dates: start: 20111101, end: 20111201
  15. LEVEMIR [Concomitant]
     Dosage: 10 UNITS
     Route: 065
  16. DIAZEPAM [Concomitant]
     Dosage: 5 - 10 MG
     Route: 048
  17. RASBURICASE [Concomitant]
     Route: 065
     Dates: start: 20111216, end: 20111216
  18. ATIVAN [Concomitant]
     Indication: NAUSEA
     Route: 065
  19. OXYCODONE HCL [Concomitant]
     Dosage: 10 MILLIGRAM
     Route: 048
  20. MULTI-VITAMINS [Concomitant]
     Route: 065
  21. GABAPENTIN [Concomitant]
     Dosage: 300 MILLIGRAM
     Route: 048

REACTIONS (6)
  - PLASMACYTOMA [None]
  - GASTROINTESTINAL HAEMORRHAGE [None]
  - DEEP VEIN THROMBOSIS [None]
  - ATRIAL FIBRILLATION [None]
  - RENAL FAILURE ACUTE [None]
  - NO THERAPEUTIC RESPONSE [None]
